FAERS Safety Report 9640534 (Version 1)
Quarter: 2013Q4

REPORT INFORMATION
  Report Type: Spontaneous
  Country: US (occurrence: None)
  Receive Date: 20131021
  Receipt Date: 20131021
  Transmission Date: 20140711
  Serious: Yes (Death, Hospitalization)
  Sender: FDA-Public Use
  Company Number: 2013AP008585

PATIENT
  Age: 47 Year
  Sex: Female

DRUGS (5)
  1. AMLODIPINE BESYLATE TABLETS [Suspect]
     Route: 048
  2. HYDROXYZINE [Suspect]
     Route: 048
  3. ALPRAZOLAM [Suspect]
     Route: 048
  4. FUROSEMIDE [Suspect]
     Route: 048
  5. SIMVASTATIN [Suspect]
     Route: 048

REACTIONS (1)
  - Completed suicide [None]
